FAERS Safety Report 16950668 (Version 1)
Quarter: 2019Q4

REPORT INFORMATION
  Report Type: Spontaneous
  Country: US (occurrence: US)
  Receive Date: 20191023
  Receipt Date: 20191023
  Transmission Date: 20200122
  Serious: No
  Sender: FDA-Public Use
  Company Number: US-009507513-1910USA009424

PATIENT
  Sex: Female

DRUGS (2)
  1. TEMODAR [Suspect]
     Active Substance: TEMOZOLOMIDE
     Dosage: 5 MILLIGRAM
     Route: 048
  2. TEMODAR [Suspect]
     Active Substance: TEMOZOLOMIDE
     Indication: BRAIN NEOPLASM MALIGNANT
     Dosage: 3 CAPSULES BY MOUTH DAILY WITH 100MG DOSE FOR TOTAL OF 315MG 5 DAYS OUT OF 28 DAY CYCLE
     Route: 048

REACTIONS (4)
  - Motion sickness [Not Recovered/Not Resolved]
  - Vertigo [Not Recovered/Not Resolved]
  - Product use issue [Unknown]
  - Decreased appetite [Not Recovered/Not Resolved]

NARRATIVE: CASE EVENT DATE: 2019
